FAERS Safety Report 9131002 (Version 1)
Quarter: 2013Q1

REPORT INFORMATION
  Report Type: Spontaneous
  Country: PL (occurrence: PL)
  Receive Date: 20130301
  Receipt Date: 20130301
  Transmission Date: 20140127
  Serious: Yes (Other)
  Sender: FDA-Public Use
  Company Number: PL-BRISTOL-MYERS SQUIBB COMPANY-17139692

PATIENT
  Age: 62 Year
  Sex: Male

DRUGS (9)
  1. REYATAZ [Suspect]
     Indication: ANTIRETROVIRAL THERAPY
     Dosage: 1DF:1 TAB
     Dates: start: 200903
  2. TRUVADA [Suspect]
     Indication: ANTIRETROVIRAL THERAPY
  3. NORVIR [Suspect]
     Indication: ANTIRETROVIRAL THERAPY
  4. ENARENAL [Concomitant]
  5. TERTENSIF [Concomitant]
  6. FUROSEMIDE [Concomitant]
  7. KALIPOZ [Concomitant]
  8. BISEPTOL [Concomitant]
  9. AZITHROMYCIN [Concomitant]

REACTIONS (2)
  - Nephropathy toxic [Recovered/Resolved]
  - Hyperbilirubinaemia [Unknown]
